FAERS Safety Report 9981679 (Version 2)
Quarter: 2014Q1

REPORT INFORMATION
  Report Type: Report from Study
  Country: US (occurrence: US)
  Receive Date: 20140307
  Receipt Date: 20140307
  Transmission Date: 20141002
  Serious: No
  Sender: FDA-Public Use
  Company Number: US-ABBVIE-13P-163-1150741-00

PATIENT
  Age: 58 Year
  Sex: Female

DRUGS (12)
  1. HUMIRA [Suspect]
     Indication: PSORIASIS
     Dates: start: 20130816, end: 20130816
  2. HUMIRA [Suspect]
     Dates: start: 20130823, end: 20130823
  3. HUMIRA [Suspect]
     Dates: start: 20130903, end: 20130903
  4. HUMIRA [Suspect]
     Dates: start: 20130917, end: 20131002
  5. HUMIRA [Suspect]
     Dates: start: 20140113
  6. CELEBREX [Concomitant]
     Indication: DEPRESSION
     Dosage: 40 MG DAILY
  7. SIMVASTATIN [Concomitant]
     Indication: BLOOD CHOLESTEROL ABNORMAL
     Dosage: AT NIGHT
  8. RANITIDINE [Concomitant]
     Indication: PROPHYLAXIS AGAINST GASTROINTESTINAL ULCER
     Dosage: 150 MG DAILY
  9. CLONAZEPAM [Concomitant]
     Indication: ANXIETY
     Dosage: 2 MG 1 TAB ONCE OR TWICE DAILY
  10. LAMICTAL [Concomitant]
     Indication: INSOMNIA
     Dosage: AT NIGHT
  11. IRBESARTAN [Concomitant]
     Indication: HYPERTENSION
     Dosage: 75 MG DAILY
  12. HYDROCODONE [Concomitant]
     Indication: PAIN
     Dosage: 7.5 MG 1 TAB UP TO 3 TIMES DAILY

REACTIONS (12)
  - Weight increased [Not Recovered/Not Resolved]
  - Arthralgia [Not Recovered/Not Resolved]
  - Circumstance or information capable of leading to medication error [Not Recovered/Not Resolved]
  - Osteoarthritis [Not Recovered/Not Resolved]
  - Malaise [Not Recovered/Not Resolved]
  - Immune system disorder [Unknown]
  - Dysphonia [Unknown]
  - Cough [Unknown]
  - Bronchitis [Not Recovered/Not Resolved]
  - Psoriasis [Unknown]
  - Gastrooesophageal reflux disease [Unknown]
  - Pharyngeal oedema [Unknown]
